FAERS Safety Report 6432256-8 (Version None)
Quarter: 2009Q4

REPORT INFORMATION
  Report Type: 
  Country: None (occurrence: None)
  Receive Date: 20091109
  Receipt Date: 20091106
  Transmission Date: 20100525
  Serious: Yes (Hospitalization, Disabling)
  Sender: FDA-Public Use
  Company Number: US-B.I. PHARMACEUTICALS,INC./RIDGEFIELD-2009-BP-09410BP

PATIENT
  Sex: Female

DRUGS (10)
  1. SPIRIVA [Suspect]
     Indication: EMPHYSEMA
     Dosage: 18 MCG
     Route: 055
     Dates: start: 20040101
  2. SPIRIVA [Suspect]
     Indication: ASTHMA
  3. VENTOLIN HFA [Suspect]
     Indication: EMPHYSEMA
     Route: 055
     Dates: start: 20090601
  4. VENTOLIN HFA [Suspect]
     Indication: ASTHMA
  5. ADVAIR DISKUS 100/50 [Concomitant]
     Indication: EMPHYSEMA
     Route: 055
     Dates: start: 20040101
  6. ADVAIR DISKUS 100/50 [Concomitant]
     Indication: ASTHMA
  7. ROBAXIN [Concomitant]
     Indication: ANALGESIC THERAPY
     Dates: start: 19980101
  8. CLONAZEPAN [Concomitant]
     Indication: ANALGESIC THERAPY
     Dates: start: 19980101
  9. ALLEGRA [Concomitant]
     Indication: ANALGESIC THERAPY
     Route: 048
     Dates: start: 19980101
  10. PROPOXYPHENE HCL CAP [Concomitant]
     Indication: ANALGESIC THERAPY
     Route: 048
     Dates: start: 19980101

REACTIONS (8)
  - ACTIVITIES OF DAILY LIVING IMPAIRED [None]
  - CATARACT [None]
  - DYSPNOEA [None]
  - GAIT DISTURBANCE [None]
  - NERVE COMPRESSION [None]
  - PNEUMONIA [None]
  - SPINAL COLUMN INJURY [None]
  - SPINAL FUSION SURGERY [None]
